FAERS Safety Report 11259076 (Version 1)
Quarter: 2015Q3

REPORT INFORMATION
  Report Type: Report from Study
  Country: BE (occurrence: BE)
  Receive Date: 20150710
  Receipt Date: 20150710
  Transmission Date: 20151125
  Serious: Yes (Other)
  Sender: FDA-Public Use
  Company Number: PHHO2008BE06859

PATIENT
  Age: 44 Year
  Sex: Male
  Weight: 89.3 kg

DRUGS (2)
  1. FTY [Suspect]
     Active Substance: FINGOLIMOD HYDROCHLORIDE
     Indication: MULTIPLE SCLEROSIS
     Route: 048
     Dates: start: 20080214, end: 20080527
  2. FUSIDIC ACID [Suspect]
     Active Substance: FUSIDIC ACID
     Indication: PRODUCT USED FOR UNKNOWN INDICATION
     Route: 065

REACTIONS (7)
  - Squamous cell carcinoma of skin [Recovered/Resolved]
  - Inflammation [Recovered/Resolved]
  - Folliculitis [Unknown]
  - Cyst [Recovered/Resolved]
  - Abnormal sensation in eye [Not Recovered/Not Resolved]
  - Hyperkeratosis [Recovered/Resolved]
  - Hyperplasia [Recovered/Resolved]

NARRATIVE: CASE EVENT DATE: 20071107
